FAERS Safety Report 8831684 (Version 2)
Quarter: 2012Q4

REPORT INFORMATION
  Report Type: 
  Country: BE (occurrence: BE)
  Receive Date: 20121009
  Receipt Date: 20121029
  Transmission Date: 20130627
  Serious: Yes (Death)
  Sender: FDA-Public Use
  Company Number: BE-009507513-1210BEL002856

PATIENT
  Age: 65 Year
  Sex: Male

DRUGS (1)
  1. VICTRELIS [Suspect]
     Indication: HEPATITIS C
     Dosage: UNK mg, tid
     Route: 048
     Dates: start: 20120515, end: 20121001

REACTIONS (1)
  - Cardiac arrest [Fatal]
